FAERS Safety Report 6292499-3 (Version None)
Quarter: 2009Q3

REPORT INFORMATION
  Report Type: 
  Country: None (occurrence: None)
  Receive Date: 20090731
  Receipt Date: 20090428
  Transmission Date: 20100115
  Serious: Yes (Life-Threatening)
  Sender: FDA-Public Use
  Company Number: FR-PFIZER INC-2009209268

PATIENT
  Age: 31 Year

DRUGS (3)
  1. PRODILANTIN [Suspect]
     Dosage: UNK
     Dates: start: 20090107, end: 20090204
  2. EPITOMAX [Suspect]
     Dosage: UNK
     Route: 048
     Dates: start: 20090121, end: 20090205
  3. DEPAKOTE [Concomitant]
     Dosage: UNK
     Dates: start: 20090129, end: 20090205

REACTIONS (5)
  - BLOOD CREATININE INCREASED [None]
  - CHOLESTASIS [None]
  - CYTOLYTIC HEPATITIS [None]
  - OEDEMA [None]
  - RASH ERYTHEMATOUS [None]
